FAERS Safety Report 8607202 (Version 4)
Quarter: 2014Q1

REPORT INFORMATION
  Report Type: Spontaneous
  Country: US (occurrence: US)
  Receive Date: 20120611
  Receipt Date: 20140108
  Transmission Date: 20141002
  Serious: Yes (Other)
  Sender: FDA-Public Use
  Company Number: US-ASTRAZENECA-2012SE34812

PATIENT
  Age: 71 Year
  Sex: Male
  Weight: 122.5 kg

DRUGS (25)
  1. NEXIUM [Suspect]
     Indication: GASTROOESOPHAGEAL REFLUX DISEASE
     Route: 048
     Dates: start: 2003, end: 2012
  2. NEXIUM [Suspect]
     Indication: GASTROOESOPHAGEAL REFLUX DISEASE
     Dosage: SOMETIMES 2 A DAY
     Route: 048
     Dates: start: 2003, end: 2012
  3. NEXIUM [Suspect]
     Indication: GASTROOESOPHAGEAL REFLUX DISEASE
     Dosage: SOMETIMES 2 A DAY
     Route: 048
     Dates: start: 2003, end: 2012
  4. NEXIUM [Suspect]
     Indication: GASTROOESOPHAGEAL REFLUX DISEASE
     Route: 048
     Dates: start: 20110627
  5. NEXIUM [Suspect]
     Indication: GASTROOESOPHAGEAL REFLUX DISEASE
     Route: 048
     Dates: start: 20120808
  6. PRILOSEC [Suspect]
     Route: 048
     Dates: start: 20110419
  7. ROLAIDS OTC [Concomitant]
     Dosage: AS NEEDED
  8. BLOOD PRESSURE MEDICINE [Concomitant]
     Indication: BLOOD PRESSURE ABNORMAL
  9. VITAMIN B [Concomitant]
  10. ZOLOFT [Concomitant]
     Indication: DEPRESSION
  11. ZOLOFT [Concomitant]
     Indication: DEPRESSION
     Dates: start: 20110718
  12. MUSCLE RELAXER [Concomitant]
     Indication: MUSCLE RELAXANT THERAPY
     Dosage: EVERY NIGHT
  13. METFORMIN [Concomitant]
     Indication: DIABETES MELLITUS
  14. METFORMIN [Concomitant]
     Indication: DIABETES MELLITUS
     Dosage: 500 MG (2) TWO TIMES A DAY
  15. ALEEVE [Concomitant]
  16. HYDROCODONE/APAP [Concomitant]
     Indication: PAIN
     Dosage: 5MG/325MG,1 OR 2 EVERY 6 HRS AS NEEDED
     Route: 048
     Dates: start: 201205
  17. HYDROCODONE/APAP [Concomitant]
     Indication: PAIN
     Dates: start: 20110308
  18. ROPINIROLE HCL [Concomitant]
     Dates: start: 20110317
  19. BUSPIRONE HCL [Concomitant]
     Dates: start: 20110610
  20. LIPITOR [Concomitant]
     Dates: start: 20111104
  21. ADVAIR DISKUS [Concomitant]
     Dosage: 2.5 MG/ 50 MG
  22. AMARYL [Concomitant]
  23. HCTZ [Concomitant]
  24. IPRATROPIUM BROMIDE [Concomitant]
  25. LISINOPRIL [Concomitant]
     Route: 048

REACTIONS (11)
  - Hip fracture [Unknown]
  - Osteoporosis [Unknown]
  - Fall [Unknown]
  - Bone disorder [Unknown]
  - Arthritis [Unknown]
  - Diabetes mellitus [Unknown]
  - Restless legs syndrome [Unknown]
  - Cataract [Unknown]
  - Cardiovascular disorder [Unknown]
  - Osteoarthritis [Unknown]
  - Diabetes mellitus inadequate control [Unknown]
